FAERS Safety Report 8542499-5 (Version None)
Quarter: 2012Q3

REPORT INFORMATION
  Report Type: 
  Country: None (occurrence: None)
  Receive Date: 20120726
  Receipt Date: 20120326
  Transmission Date: 20120928
  Serious: Yes (Other)
  Sender: FDA-Public Use
  Company Number: US-ASTRAZENECA-2011SE36549

PATIENT
  Age: 66 Year
  Sex: Female

DRUGS (1)
  1. SEROQUEL [Suspect]
     Route: 048

REACTIONS (8)
  - MOOD ALTERED [None]
  - HEART RATE IRREGULAR [None]
  - CONVULSION [None]
  - BIPOLAR DISORDER [None]
  - INCORRECT DOSE ADMINISTERED [None]
  - CONDITION AGGRAVATED [None]
  - DRUG DOSE OMISSION [None]
  - ADVERSE EVENT [None]
